FAERS Safety Report 16714989 (Version 1)
Quarter: 2019Q3

REPORT INFORMATION
  Report Type: Spontaneous
  Country: MX (occurrence: MX)
  Receive Date: 20190819
  Receipt Date: 20190819
  Transmission Date: 20191005
  Serious: Yes (Hospitalization, Other)
  Sender: FDA-Public Use
  Company Number: MX-ROCHE-2381865

PATIENT
  Age: 48 Year
  Sex: Female

DRUGS (8)
  1. PALBOCICLIB [Concomitant]
     Active Substance: PALBOCICLIB
     Route: 048
  2. XELODA [Suspect]
     Active Substance: CAPECITABINE
     Indication: BREAST CANCER STAGE IV
     Route: 065
  3. GEMCITABINE. [Suspect]
     Active Substance: GEMCITABINE
     Indication: BREAST CANCER STAGE IV
     Route: 065
  4. PALBOCICLIB [Concomitant]
     Active Substance: PALBOCICLIB
     Indication: BREAST CANCER STAGE IV
     Route: 048
  5. GOSERELIN [Concomitant]
     Active Substance: GOSERELIN
  6. TAMOXIFEN [Concomitant]
     Active Substance: TAMOXIFEN
     Route: 048
     Dates: start: 201612
  7. PACLITAXEL. [Concomitant]
     Active Substance: PACLITAXEL
     Indication: BREAST CANCER STAGE IV
     Route: 065
  8. FULVESTRANT. [Concomitant]
     Active Substance: FULVESTRANT
     Indication: BREAST CANCER STAGE IV
     Route: 065

REACTIONS (8)
  - Osteolysis [Unknown]
  - Metastases to bone [Unknown]
  - Pleural thickening [Unknown]
  - Breast injury [Unknown]
  - Dyspnoea [Unknown]
  - Febrile neutropenia [Unknown]
  - Neutropenia [Unknown]
  - Pleural effusion [Unknown]
